FAERS Safety Report 5158624-2 (Version None)
Quarter: 2006Q4

REPORT INFORMATION
  Report Type: 
  Country: None (occurrence: None)
  Receive Date: 20061128
  Receipt Date: 20061117
  Transmission Date: 20070319
  Serious: Yes (Hospitalization)
  Sender: FDA-Public Use
  Company Number: CH-ELI_LILLY_AND_COMPANY-CH200611003894

PATIENT
  Age: 64 Year
  Sex: Male

DRUGS (8)
  1. HUMALOG [Suspect]
     Indication: DIABETES MELLITUS NON-INSULIN-DEPENDENT
     Dosage: UNK UNK, AS NEEDED
     Route: 058
  2. ROSIGLITAZONE MALEATE [Concomitant]
     Indication: DIABETES MELLITUS NON-INSULIN-DEPENDENT
     Dosage: UNK MG, 2/D
     Route: 048
     Dates: start: 20060301
  3. LANTUS [Concomitant]
     Indication: DIABETES MELLITUS NON-INSULIN-DEPENDENT
     Dosage: UNK , UNK
     Route: 058
  4. PLAVIX                                  /UNK/ [Concomitant]
     Dosage: UNK UNK, DAILY (1/D)
     Route: 048
  5. BELOC-ZOK                               /SCH/ [Concomitant]
     Dosage: UNK UNK, DAILY (1/D)
     Route: 048
  6. NEXIUM [Concomitant]
     Dosage: UNK UNK, DAILY (1/D)
     Route: 048
  7. FLUCTINE [Suspect]
     Dosage: UNK UNK, DAILY (1/D)
     Route: 048
  8. ALLOPURINOL [Concomitant]
     Dosage: 300 MG, DAILY (1/D)
     Route: 048

REACTIONS (9)
  - ANAEMIA [None]
  - BLOOD CREATINE PHOSPHOKINASE INCREASED [None]
  - CONDITION AGGRAVATED [None]
  - DYSPNOEA [None]
  - OEDEMA [None]
  - PAIN IN EXTREMITY [None]
  - RALES [None]
  - SYNOVIAL CYST [None]
  - WEIGHT INCREASED [None]
